FAERS Safety Report 8882652 (Version 1)
Quarter: 2012Q4

REPORT INFORMATION
  Report Type: 
  Country: AR (occurrence: AR)
  Receive Date: 20121102
  Receipt Date: 20121102
  Transmission Date: 20130627
  Serious: Yes (Death)
  Sender: FDA-Public Use
  Company Number: PHHY2012AR099872

PATIENT
  Sex: Male

DRUGS (2)
  1. EXELON PATCH [Suspect]
     Indication: MEMORY IMPAIRMENT
     Dosage: 1 DF daily
     Route: 062
  2. OXYGEN [Concomitant]

REACTIONS (1)
  - Emphysema [Fatal]
